FAERS Safety Report 21517426 (Version 3)
Quarter: 2023Q2

REPORT INFORMATION
  Report Type: Spontaneous
  Country: US (occurrence: US)
  Receive Date: 20221028
  Receipt Date: 20230522
  Transmission Date: 20230721
  Serious: No
  Sender: FDA-Public Use
  Company Number: US-EXELIXIS-CABO-22056431

PATIENT
  Age: 72 Year
  Sex: Male
  Weight: 84.807 kg

DRUGS (4)
  1. OPDIVO [Suspect]
     Active Substance: NIVOLUMAB
     Indication: Product used for unknown indication
     Dosage: UNK
  2. CABOMETYX [Suspect]
     Active Substance: CABOZANTINIB S-MALATE
     Indication: Renal cancer
     Dosage: 40 MG, QD
     Route: 048
     Dates: start: 20210709
  3. OMEPRAZOLE [Concomitant]
     Active Substance: OMEPRAZOLE
     Indication: Product used for unknown indication
     Dosage: UNK
  4. LEVOTHYROXINE [Concomitant]
     Active Substance: LEVOTHYROXINE
     Indication: Product used for unknown indication
     Dosage: UNK

REACTIONS (13)
  - Flatulence [Unknown]
  - Viral infection [Recovered/Resolved]
  - Diarrhoea [Unknown]
  - Dysphonia [Unknown]
  - Blood pressure increased [Unknown]
  - Blood creatinine increased [Unknown]
  - Weight decreased [Unknown]
  - Faeces discoloured [Unknown]
  - Limb discomfort [Unknown]
  - Gastrointestinal disorder [Not Recovered/Not Resolved]
  - Blood alkaline phosphatase increased [Unknown]
  - Decreased appetite [Recovering/Resolving]
  - Fatigue [Unknown]

NARRATIVE: CASE EVENT DATE: 20211201
